FAERS Safety Report 6011133-0 (Version None)
Quarter: 2008Q4

REPORT INFORMATION
  Report Type: 
  Country: None (occurrence: None)
  Receive Date: 20081218
  Receipt Date: 20080327
  Transmission Date: 20090506
  Serious: Yes (Life-Threatening)
  Sender: FDA-Public Use
  Company Number: US-BAXTER-2008BH010263

PATIENT

DRUGS (3)
  1. GAMMAGARD LIQUID [Suspect]
     Indication: PRIMARY IMMUNODEFICIENCY SYNDROME
     Dosage: DOSE UNIT:UNKNOWN
     Route: 042
     Dates: start: 20070101
  2. ACETAMINOPHEN [Concomitant]
     Indication: PREMEDICATION
     Route: 065
  3. DIPHENHYDRAMINE HCL [Concomitant]
     Indication: PREMEDICATION
     Route: 065

REACTIONS (1)
  - MENINGITIS PNEUMOCOCCAL [None]
